FAERS Safety Report 14933237 (Version 3)
Quarter: 2018Q3

REPORT INFORMATION
  Report Type: Report from Study
  Country: AR (occurrence: AR)
  Receive Date: 20180524
  Receipt Date: 20180717
  Transmission Date: 20181010
  Serious: Yes (Other)
  Sender: FDA-Public Use
  Company Number: PHHY2018AR004464

PATIENT
  Sex: Female

DRUGS (4)
  1. TRAVATAN [Suspect]
     Active Substance: TRAVOPROST
     Indication: GLAUCOMA
     Dosage: 1 GTT, BID (DROP IN THE MORNING AND ANOTHER ONE AT NIGHT IN EACH EYE)
     Route: 065
  2. TRAVATAN [Suspect]
     Active Substance: TRAVOPROST
     Dosage: 1 GTT, QN
     Route: 065
  3. LOSACOR D [Concomitant]
     Indication: BLOOD PRESSURE ABNORMAL
     Route: 065
  4. TAURAL [Concomitant]
     Indication: PRODUCT USED FOR UNKNOWN INDICATION
     Route: 065

REACTIONS (3)
  - Intraocular pressure increased [Recovering/Resolving]
  - Atrioventricular block first degree [Unknown]
  - Drug ineffective [Unknown]
